FAERS Safety Report 5288347-0 (Version None)
Quarter: 2007Q2

REPORT INFORMATION
  Report Type: 
  Country: None (occurrence: None)
  Receive Date: 20070405
  Receipt Date: 20070328
  Transmission Date: 20071010
  Serious: Yes (Hospitalization)
  Sender: FDA-Public Use
  Company Number: IT-ROCHE-490383

PATIENT
  Age: 79 Year
  Sex: Male

DRUGS (7)
  1. ROCEPHIN [Suspect]
     Indication: COLITIS
     Route: 030
     Dates: start: 20070313, end: 20070315
  2. SIVASTIN [Concomitant]
     Route: 048
  3. XATRAL [Concomitant]
     Indication: BENIGN PROSTATIC HYPERPLASIA
     Route: 048
  4. AVODART [Concomitant]
     Indication: BENIGN PROSTATIC HYPERPLASIA
     Route: 048
  5. VASERETIC [Concomitant]
     Indication: HYPERTENSION
     Route: 048
  6. SELEPARINA [Concomitant]
     Dosage: STRENGTH: 2850 UI
     Route: 058
  7. DEPONIT [Concomitant]
     Dosage: DOSE: 10 MG/24 HOURS
     Route: 062

REACTIONS (1)
  - STEVENS-JOHNSON SYNDROME [None]
